FAERS Safety Report 6124600-6 (Version None)
Quarter: 2009Q1

REPORT INFORMATION
  Report Type: 
  Country: None (occurrence: None)
  Receive Date: 20090319
  Receipt Date: 20090312
  Transmission Date: 20090719
  Serious: Yes (Other)
  Sender: FDA-Public Use
  Company Number: A0772796A

PATIENT
  Age: 64 Year
  Sex: Female

DRUGS (7)
  1. COREG CR [Suspect]
     Indication: HYPERTENSION
     Dosage: 20MG PER DAY
     Route: 048
     Dates: start: 20090215
  2. KLONOPIN [Concomitant]
  3. PREMARIN [Concomitant]
  4. NEXIUM [Concomitant]
  5. ZOFRAN [Concomitant]
  6. REMERON [Concomitant]
  7. VALIUM [Concomitant]

REACTIONS (3)
  - DYSGEUSIA [None]
  - NEUROPATHY PERIPHERAL [None]
  - PAIN [None]
